FAERS Safety Report 26006857 (Version 1)
Quarter: 2025Q4

REPORT INFORMATION
  Report Type: Spontaneous
  Country: US (occurrence: US)
  Receive Date: 20251106
  Receipt Date: 20251106
  Transmission Date: 20260118
  Serious: Yes (Other)
  Sender: AMGEN
  Company Number: US-AMGEN-USASP2025216048

PATIENT
  Age: 18 Year
  Sex: Male

DRUGS (13)
  1. PREDNISONE [Suspect]
     Active Substance: PREDNISONE
     Indication: Choroiditis
     Dosage: 60 MILLIGRAM
     Route: 048
  2. PREDNISONE [Suspect]
     Active Substance: PREDNISONE
     Indication: Retinal vasculitis
     Dosage: TAPERED OVER EIGHT WEEKS
     Route: 048
  3. RANIBIZUMAB [Concomitant]
     Active Substance: RANIBIZUMAB
     Indication: Retinal vein occlusion
     Dosage: FIVE INJECTIONS
  4. RANIBIZUMAB [Concomitant]
     Active Substance: RANIBIZUMAB
     Indication: Macular oedema
  5. RANIBIZUMAB [Concomitant]
     Active Substance: RANIBIZUMAB
     Indication: Vitreous haemorrhage
  6. TRIAMCINOLONE [Concomitant]
     Active Substance: TRIAMCINOLONE
     Indication: Choroiditis
     Dosage: IN THE LEFT EYE
     Route: 065
  7. TRIAMCINOLONE [Concomitant]
     Active Substance: TRIAMCINOLONE
     Indication: Retinal vasculitis
  8. METHOTREXATE [Concomitant]
     Active Substance: METHOTREXATE
     Indication: Immunosuppressant drug therapy
     Dosage: 15 MILLIGRAM, QWK
     Route: 048
  9. FOLIC ACID [Concomitant]
     Active Substance: FOLIC ACID
     Dosage: 1 MILLIGRAM, QD
     Route: 065
  10. TIMOLOL [Concomitant]
     Active Substance: TIMOLOL
     Dosage: UNK
     Route: 061
  11. DORZOLAMIDE [Concomitant]
     Active Substance: DORZOLAMIDE
     Dosage: UNK
     Route: 065
  12. BRIMONIDINE [Concomitant]
     Active Substance: BRIMONIDINE TARTRATE
  13. ACETAZOLAMIDE [Concomitant]
     Active Substance: ACETAZOLAMIDE
     Dosage: UNK
     Route: 048

REACTIONS (6)
  - Vitreous haemorrhage [Unknown]
  - Chorioretinal scar [Unknown]
  - Macular scar [Unknown]
  - Detachment of retinal pigment epithelium [Unknown]
  - Intraocular pressure increased [Unknown]
  - West Nile virus test positive [Unknown]
